FAERS Safety Report 5871093-X (Version None)
Quarter: 2008Q3

REPORT INFORMATION
  Report Type: 
  Country: None (occurrence: None)
  Receive Date: 20080904
  Receipt Date: 20080825
  Transmission Date: 20090109
  Serious: Yes (Hospitalization, Other)
  Sender: FDA-Public Use
  Company Number: US-BAXTER-2008BH009085

PATIENT
  Age: 22 Month
  Sex: Male
  Weight: 28 kg

DRUGS (1)
  1. GAMMAGARD LIQUID [Suspect]
     Indication: BLOOD IMMUNOGLOBULIN M INCREASED
     Route: 042
     Dates: start: 20000601, end: 20000601

REACTIONS (1)
  - ANAPHYLACTIC REACTION [None]
